FAERS Safety Report 4493581-3 (Version None)
Quarter: 2004Q4

REPORT INFORMATION
  Report Type: 
  Country: None (occurrence: None)
  Receive Date: 20041105
  Receipt Date: 20031106
  Transmission Date: 20050328
  Serious: Yes (Hospitalization)
  Sender: FDA-Public Use
  Company Number: US-BRISTOL-MYERS SQUIBB COMPANY-12429676

PATIENT
  Age: 71 Year
  Sex: Female

DRUGS (6)
  1. MEGACE [Suspect]
     Indication: ENDOMETRIAL HYPERPLASIA
  2. DYAZIDE [Concomitant]
  3. METOPROLOL SR [Concomitant]
  4. LANSOPRAZOLE [Concomitant]
  5. VITAMIN E [Concomitant]
  6. IBUPROFEN [Concomitant]

REACTIONS (1)
  - DEEP VEIN THROMBOSIS [None]
